FAERS Safety Report 7297622-X (Version None)
Quarter: 2011Q1

REPORT INFORMATION
  Report Type: 
  Country: None (occurrence: None)
  Receive Date: 20110216
  Receipt Date: 20110202
  Transmission Date: 20110831
  Serious: Yes (Death, Hospitalization, Other)
  Sender: FDA-Public Use
  Company Number: US-CELGENEUS-163-21880-11020871

PATIENT
  Sex: Male

DRUGS (14)
  1. REVLIMID [Suspect]
     Indication: RENAL AMYLOIDOSIS
  2. ISOSORBIDE MONONITRATE [Concomitant]
     Route: 065
  3. TERAZOSIN [Concomitant]
     Route: 065
  4. REVLIMID [Suspect]
     Indication: WALDENSTROM'S MACROGLOBULINAEMIA
     Route: 048
     Dates: start: 20110111, end: 20110117
  5. DECADRON [Concomitant]
     Indication: RENAL AMYLOIDOSIS
  6. FLUOXETINE [Concomitant]
     Route: 065
  7. NITROGLYCERIN [Concomitant]
     Route: 065
  8. SIMVASTATIN [Concomitant]
     Route: 065
  9. DECADRON [Concomitant]
     Route: 065
     Dates: start: 20110111
  10. ASPIRIN [Concomitant]
     Route: 065
  11. IRON DEXTRAN [Concomitant]
     Route: 065
  12. OMEPRAZOLE [Concomitant]
     Route: 065
  13. ONDANSETRON [Concomitant]
     Route: 065
  14. METOPROLOL TARTRATE [Concomitant]
     Route: 065

REACTIONS (8)
  - BLOOD CREATININE INCREASED [None]
  - ABDOMINAL PAIN UPPER [None]
  - NAUSEA [None]
  - DELIRIUM [None]
  - DEATH [None]
  - ANAEMIA [None]
  - PYREXIA [None]
  - CARDIAC AMYLOIDOSIS [None]
